FAERS Safety Report 22389451 (Version 1)
Quarter: 2023Q2

REPORT INFORMATION
  Report Type: Spontaneous
  Country: US (occurrence: None)
  Receive Date: 20230530
  Receipt Date: 20230530
  Transmission Date: 20230722
  Serious: Yes (Disabling, Other)
  Sender: FDA-Public Use
  Company Number: None

PATIENT
  Age: 30 Year
  Sex: Female
  Weight: 60.75 kg

DRUGS (1)
  1. HYLENEX RECOMBINANT [Suspect]
     Active Substance: HYALURONIDASE (HUMAN RECOMBINANT)
     Indication: Lip cosmetic procedure
     Dosage: OTHER QUANTITY : 150 UNITS;?OTHER ROUTE : CANNULA INJECTION;?
     Route: 050
     Dates: start: 20230101

REACTIONS (12)
  - Skin injury [None]
  - Swelling [None]
  - Skin atrophy [None]
  - Skin texture abnormal [None]
  - Facial paralysis [None]
  - Lid sulcus deepened [None]
  - Skin wrinkling [None]
  - Dry skin [None]
  - Eye irritation [None]
  - Varicose vein [None]
  - Arthralgia [None]
  - Premature ageing [None]

NARRATIVE: CASE EVENT DATE: 20230101
